FAERS Safety Report 7507409-8 (Version None)
Quarter: 2011Q2

REPORT INFORMATION
  Report Type: 
  Country: None (occurrence: None)
  Receive Date: 20110526
  Receipt Date: 20110519
  Transmission Date: 20111010
  Serious: Yes (Hospitalization)
  Sender: FDA-Public Use
  Company Number: US-MPIJNJ-2011-02073

PATIENT
  Age: 69 Year
  Sex: Female
  Weight: 114.4 kg

DRUGS (2)
  1. DEXAMETHASONE [Suspect]
     Indication: MULTIPLE MYELOMA
     Dosage: 40 MG, CYCLIC
     Route: 048
     Dates: start: 20101229
  2. VELCADE [Suspect]
     Indication: MULTIPLE MYELOMA
     Dosage: 1.3 MG/M2, CYCLIC
     Route: 042
     Dates: start: 20101229

REACTIONS (4)
  - DYSPNOEA [None]
  - HYPERVISCOSITY SYNDROME [None]
  - LEUKOPENIA [None]
  - HAEMORRHAGIC DIATHESIS [None]
